FAERS Safety Report 21985418 (Version 1)
Quarter: 2023Q1

REPORT INFORMATION
  Report Type: Spontaneous
  Country: US (occurrence: None)
  Receive Date: 20230210
  Receipt Date: 20230210
  Transmission Date: 20230418
  Serious: Yes (Hospitalization)
  Sender: FDA-Public Use
  Company Number: None

PATIENT
  Sex: Female

DRUGS (1)
  1. IBRANCE [Suspect]
     Active Substance: PALBOCICLIB
     Indication: Breast cancer
     Dosage: OTHER FREQUENCY : DAILY 21ON/7OFF;?
     Route: 048
     Dates: start: 202002

REACTIONS (3)
  - Computerised tomogram thorax abnormal [None]
  - Thrombosis [None]
  - Dyspnoea [None]
